FAERS Safety Report 13005847 (Version 1)
Quarter: 2016Q4

REPORT INFORMATION
  Report Type: Spontaneous
  Country: ES (occurrence: ES)
  Receive Date: 20161207
  Receipt Date: 20161207
  Transmission Date: 20170207
  Serious: Yes (Death, Other)
  Sender: FDA-Public Use
  Company Number: ES-PFIZER INC-2015197751

PATIENT
  Age: 54 Year
  Sex: Male

DRUGS (3)
  1. VANCOMYCIN HCL [Suspect]
     Active Substance: VANCOMYCIN HYDROCHLORIDE
     Indication: INFECTION
     Dosage: UNK
  2. MEROPENEM. [Concomitant]
     Active Substance: MEROPENEM
     Indication: INFECTION
     Dosage: UNK
  3. ALBUMIN [Concomitant]
     Active Substance: ALBUMIN HUMAN
     Indication: INFECTION
     Dosage: UNK

REACTIONS (3)
  - Hepatorenal syndrome [Fatal]
  - Linear IgA disease [Recovered/Resolved]
  - Nephropathy toxic [Unknown]
